FAERS Safety Report 5921094-8 (Version None)
Quarter: 2008Q4

REPORT INFORMATION
  Report Type: 
  Country: None (occurrence: None)
  Receive Date: 20081016
  Receipt Date: 20081008
  Transmission Date: 20090506
  Serious: Yes (Other)
  Sender: FDA-Public Use
  Company Number: IE-PFIZER INC-2008085152

PATIENT
  Sex: Male

DRUGS (3)
  1. ISTIN [Suspect]
     Route: 048
  2. RENIN-ANGIOTENSIN SYSTEM, AGENTS ACTING ON [Concomitant]
  3. DIURETICS [Concomitant]

REACTIONS (5)
  - ANKLE FRACTURE [None]
  - DIZZINESS [None]
  - DYSPNOEA [None]
  - ELECTROLYTE IMBALANCE [None]
  - OEDEMA [None]
